FAERS Safety Report 7086281-7 (Version None)
Quarter: 2010Q4

REPORT INFORMATION
  Report Type: 
  Country: None (occurrence: None)
  Receive Date: 20101105
  Receipt Date: 20101027
  Transmission Date: 20110411
  Serious: Yes (Other)
  Sender: FDA-Public Use
  Company Number: US-MERCK-0811USA03113

PATIENT
  Age: 65 Year
  Sex: Female

DRUGS (2)
  1. PRINIVIL [Suspect]
     Route: 048
  2. CEFTRIAXONE SODIUM [Suspect]
     Route: 065

REACTIONS (2)
  - CHOLESTASIS [None]
  - HEPATOTOXICITY [None]
